FAERS Safety Report 6691361-1 (Version None)
Quarter: 2010Q2

REPORT INFORMATION
  Report Type: 
  Country: None (occurrence: None)
  Receive Date: 20100422
  Receipt Date: 20100421
  Transmission Date: 20101027
  Serious: Yes (Other)
  Sender: FDA-Public Use
  Company Number: US-RB-007486-10

PATIENT
  Age: 63 Year
  Sex: Female

DRUGS (1)
  1. MUCINEX [Suspect]
     Dosage: TAKING 1 TABLET EVERY 12 HOURS SINCE 4 WEEKS
     Route: 048
     Dates: start: 20100324

REACTIONS (3)
  - BLOOD PRESSURE INCREASED [None]
  - HEADACHE [None]
  - INCORRECT DRUG ADMINISTRATION DURATION [None]
